FAERS Safety Report 13167425 (Version 1)
Quarter: 2017Q1

REPORT INFORMATION
  Report Type: Spontaneous
  Country: US (occurrence: US)
  Receive Date: 20170131
  Receipt Date: 20170131
  Transmission Date: 20170428
  Serious: No
  Sender: FDA-Public Use
  Company Number: US-PFIZER INC-2017034692

PATIENT
  Age: 76 Year
  Sex: Female
  Weight: 57.6 kg

DRUGS (1)
  1. IBRANCE [Suspect]
     Active Substance: PALBOCICLIB
     Indication: BREAST CANCER
     Dosage: 100 MG, CYCLIC, (DAY 1-21 Q 28 DAYS)
     Route: 048
     Dates: start: 20161118

REACTIONS (5)
  - Neuralgia [Unknown]
  - Gait disturbance [Unknown]
  - Pain in extremity [Unknown]
  - Muscular weakness [Unknown]
  - Peripheral arthritis [Unknown]
